FAERS Safety Report 12969555 (Version 1)
Quarter: 2016Q4

REPORT INFORMATION
  Report Type: Report from Study
  Country: JP (occurrence: JP)
  Receive Date: 20161123
  Receipt Date: 20161123
  Transmission Date: 20170207
  Serious: Yes (Hospitalization, Other)
  Sender: FDA-Public Use
  Company Number: JP-ACTELION-A-CH2016-145621

PATIENT
  Age: 50 Year
  Sex: Female

DRUGS (22)
  1. CEFAZOLIN SODIUM. [Suspect]
     Active Substance: CEFAZOLIN SODIUM
     Indication: INFECTION PROPHYLAXIS
     Dosage: 1 G, QD
     Route: 042
     Dates: start: 20151002, end: 20151002
  2. CEFAZOLIN SODIUM. [Suspect]
     Active Substance: CEFAZOLIN SODIUM
     Dosage: 1 G, QD
     Route: 042
     Dates: start: 20151016, end: 20151016
  3. EPOPROSTENOL ACT [Suspect]
     Active Substance: EPOPROSTENOL
     Dosage: 27 NG/KG, PER MIN
     Route: 042
  4. WARFARIN POTASSIUM [Concomitant]
     Active Substance: WARFARIN POTASSIUM
  5. CEFAZOLIN SODIUM. [Suspect]
     Active Substance: CEFAZOLIN SODIUM
     Dosage: 3 G, QD
     Route: 042
     Dates: start: 20151003, end: 20151007
  6. ESOMEPRAZOLE MAGNESIUM. [Concomitant]
     Active Substance: ESOMEPRAZOLE MAGNESIUM
  7. FENTANYL CITRATE. [Concomitant]
     Active Substance: FENTANYL CITRATE
  8. HYDROXYZINE HYDROCHLORIDE. [Concomitant]
     Active Substance: HYDROXYZINE HYDROCHLORIDE
  9. HEPARIN SODIUM. [Concomitant]
     Active Substance: HEPARIN SODIUM
  10. EPOPROSTENOL ACT [Suspect]
     Active Substance: EPOPROSTENOL
     Indication: PULMONARY ARTERIAL HYPERTENSION
     Dosage: 0.214 NG/KG, PER MIN
     Route: 042
     Dates: start: 20151005
  11. SENNOSIDE [Suspect]
     Active Substance: SENNOSIDES
     Indication: CONSTIPATION
     Dosage: UNK
     Route: 048
     Dates: start: 20151007, end: 20151009
  12. CEFAZOLIN SODIUM. [Suspect]
     Active Substance: CEFAZOLIN SODIUM
     Dosage: 1 G, QD
     Route: 042
     Dates: start: 20151008, end: 20151008
  13. ACETAMINOPHEN. [Concomitant]
     Active Substance: ACETAMINOPHEN
  14. FUROSEMIDE. [Concomitant]
     Active Substance: FUROSEMIDE
  15. CEFAZOLIN SODIUM. [Suspect]
     Active Substance: CEFAZOLIN SODIUM
     Dosage: 2 G, QD
     Route: 042
     Dates: start: 20151021, end: 20151023
  16. BROTIZOLAM [Concomitant]
     Active Substance: BROTIZOLAM
  17. PROPOFOL. [Concomitant]
     Active Substance: PROPOFOL
  18. DOBUTAMINE HYDROCHLORIDE. [Concomitant]
     Active Substance: DOBUTAMINE HYDROCHLORIDE
  19. OMEPRAZOLE SODIUM [Concomitant]
     Active Substance: OMEPRAZOLE SODIUM
  20. OPSUMIT [Suspect]
     Active Substance: MACITENTAN
     Indication: PULMONARY ARTERIAL HYPERTENSION
     Dosage: 10 MG, QD
     Route: 048
     Dates: start: 20150929
  21. ADEMPAS [Suspect]
     Active Substance: RIOCIGUAT
     Indication: PULMONARY ARTERIAL HYPERTENSION
     Dosage: 10 MG, TID
     Route: 048
     Dates: start: 20151001, end: 20151002
  22. OXYGEN. [Concomitant]
     Active Substance: OXYGEN

REACTIONS (24)
  - Back pain [Recovered/Resolved]
  - Vasculitis [Recovering/Resolving]
  - Diarrhoea [Recovered/Resolved]
  - Circulatory collapse [Recovering/Resolving]
  - Chest pain [Recovering/Resolving]
  - Headache [Recovering/Resolving]
  - Pruritus [Recovering/Resolving]
  - Abdominal pain [Recovered/Resolved with Sequelae]
  - Cough [Recovered/Resolved with Sequelae]
  - Dizziness [Recovering/Resolving]
  - PO2 decreased [Recovering/Resolving]
  - Blood pressure decreased [Recovering/Resolving]
  - Pseudomembranous colitis [Recovered/Resolved]
  - Extracorporeal membrane oxygenation [Unknown]
  - Blood potassium decreased [Recovered/Resolved]
  - Constipation [Recovered/Resolved]
  - Transfusion [Unknown]
  - Fibrin degradation products [Recovered/Resolved]
  - Temporomandibular joint syndrome [Recovering/Resolving]
  - Vomiting [Recovered/Resolved]
  - Hypokalaemia [Recovered/Resolved]
  - PCO2 decreased [Recovering/Resolving]
  - Faeces soft [Not Recovered/Not Resolved]
  - Nausea [Recovered/Resolved]

NARRATIVE: CASE EVENT DATE: 20151001
